FAERS Safety Report 14162414 (Version 1)
Quarter: 2017Q4

REPORT INFORMATION
  Report Type: Spontaneous
  Country: GB (occurrence: GB)
  Receive Date: 20171106
  Receipt Date: 20171106
  Transmission Date: 20180321
  Serious: Yes (Other)
  Sender: FDA-Public Use
  Company Number: GB-PFIZER INC-2017473178

PATIENT
  Age: 29 Year
  Sex: Male

DRUGS (1)
  1. CHAMPIX [Suspect]
     Active Substance: VARENICLINE TARTRATE
     Dosage: UNK
     Route: 048
     Dates: start: 20171006, end: 20171021

REACTIONS (5)
  - Oropharyngeal pain [Unknown]
  - Panic attack [Recovering/Resolving]
  - Pain in extremity [Unknown]
  - Mood altered [Recovering/Resolving]
  - Negative thoughts [Unknown]

NARRATIVE: CASE EVENT DATE: 20171021
